FAERS Safety Report 20134851 (Version 1)
Quarter: 2021Q4

REPORT INFORMATION
  Report Type: Spontaneous
  Country: US (occurrence: None)
  Receive Date: 20211130
  Receipt Date: 20211130
  Transmission Date: 20220303
  Serious: No
  Sender: FDA-Public Use
  Company Number: None

PATIENT
  Age: 62 Year
  Sex: Female

DRUGS (1)
  1. OPSUMIT [Suspect]
     Active Substance: MACITENTAN
     Indication: Pulmonary hypertension

REACTIONS (5)
  - Pulmonary arterial wedge pressure increased [None]
  - Diastolic dysfunction [None]
  - Cardiac output increased [None]
  - Sleep apnoea syndrome [None]
  - Hypoxia [None]

NARRATIVE: CASE EVENT DATE: 20211130
